FAERS Safety Report 17661897 (Version 1)
Quarter: 2020Q2

REPORT INFORMATION
  Report Type: Spontaneous
  Country: US (occurrence: US)
  Receive Date: 20200413
  Receipt Date: 20200413
  Transmission Date: 20200713
  Serious: No
  Sender: FDA-Public Use
  Company Number: None

PATIENT
  Age: 53 Year
  Sex: Female
  Weight: 71.1 kg

DRUGS (16)
  1. NYSTATIN 100000, MOUTHWASH, QID [Concomitant]
  2. CYANOCOBALAMIN 2500 MCG, SL, UD [Concomitant]
  3. LOMOTIL 2.5- 0.025MG,ORAL [Concomitant]
  4. ONDANSETRON 8 MG,ORAL [Concomitant]
  5. CAPECITABINE. [Suspect]
     Active Substance: CAPECITABINE
     Indication: COLON CANCER
     Route: 048
     Dates: start: 20200210, end: 20200413
  6. ALBUTEROL HFA 108MG, ORAL [Concomitant]
  7. PRYRIDOXINE 50MG, ORAL [Concomitant]
  8. MULTIVITAMIN ORAL TABLET [Concomitant]
     Active Substance: VITAMINS
  9. VITAMIN C 500MG, ORAL [Concomitant]
  10. VITAMIN B12 1000 MCG, ORAL [Concomitant]
  11. REGLAN 10MG, ORAL EVERY 4 TO 6 HOURS [Concomitant]
  12. ERGOCALCIFEROL 400 U, ORAL [Concomitant]
  13. CALCIUM  - CHLOECALCIFEROL, QD [Concomitant]
  14. GABAPENTIN 300MG, ORAL TID [Concomitant]
  15. POTASSIUM CHLORIDE ER, ORAL [Concomitant]
  16. BENADRYL 25MG, ORAL [Concomitant]

REACTIONS (1)
  - Disease progression [None]

NARRATIVE: CASE EVENT DATE: 20200413
